FAERS Safety Report 7878301-4 (Version None)
Quarter: 2011Q4

REPORT INFORMATION
  Report Type: 
  Country: None (occurrence: None)
  Receive Date: 20111101
  Receipt Date: 20111021
  Transmission Date: 20120403
  Serious: Yes (Other)
  Sender: FDA-Public Use
  Company Number: GB-JNJFOC-20110803275

PATIENT
  Sex: Female
  Weight: 58 kg

DRUGS (1)
  1. STELARA [Suspect]
     Indication: PSORIASIS
     Route: 058
     Dates: start: 20110411

REACTIONS (2)
  - EMOTIONAL DISTRESS [None]
  - DEPRESSION [None]
